FAERS Safety Report 19809347 (Version 3)
Quarter: 2022Q2

REPORT INFORMATION
  Report Type: Spontaneous
  Country: US (occurrence: US)
  Receive Date: 20210909
  Receipt Date: 20220405
  Transmission Date: 20220721
  Serious: Yes (Hospitalization, Other)
  Sender: FDA-Public Use
  Company Number: US-NOVARTISTESTPH-NVSC2021US202188

PATIENT
  Sex: Female

DRUGS (3)
  1. PROMACTA [Suspect]
     Active Substance: ELTROMBOPAG OLAMINE
     Indication: Immune thrombocytopenia
     Dosage: 50 MG, QD (STRENGTH 50 MG))
     Route: 048
     Dates: start: 202107
  2. PROMACTA [Suspect]
     Active Substance: ELTROMBOPAG OLAMINE
     Dosage: 75 MG, QD, (STRENGTH 25 MG)
     Route: 048
     Dates: start: 20210801
  3. PROMACTA [Suspect]
     Active Substance: ELTROMBOPAG OLAMINE
     Dosage: 25 MG, QD (STRENGTH 25 MG)
     Route: 048
     Dates: start: 20210728

REACTIONS (4)
  - Platelet count decreased [Unknown]
  - Cerebral venous thrombosis [Unknown]
  - Arthralgia [Unknown]
  - Visual impairment [Unknown]
